FAERS Safety Report 7761283-3 (Version None)
Quarter: 2011Q3

REPORT INFORMATION
  Report Type: 
  Country: None (occurrence: None)
  Receive Date: 20110920
  Receipt Date: 20110905
  Transmission Date: 20111222
  Serious: Yes (Hospitalization)
  Sender: FDA-Public Use
  Company Number: DE-US-EMD SERONO, INC.-7080393

PATIENT
  Age: 53 Year
  Sex: Female
  Weight: 82 kg

DRUGS (3)
  1. BISOPLUS 5/12.5 [Concomitant]
  2. REBIF [Suspect]
     Indication: MULTIPLE SCLEROSIS
     Route: 058
     Dates: start: 20020402
  3. CANDESARTAN CILEXETIL AND HYDROCHLOROTHIAZIDE [Concomitant]

REACTIONS (1)
  - NON-HODGKIN'S LYMPHOMA [None]
